FAERS Safety Report 22086904 (Version 5)
Quarter: 2025Q3

REPORT INFORMATION
  Report Type: Spontaneous
  Country: JP (occurrence: JP)
  Receive Date: 20230312
  Receipt Date: 20250717
  Transmission Date: 20251021
  Serious: Yes (Other)
  Sender: NOVEN
  Company Number: JP-NOVEN PHARMACEUTICALS, INC.-2023-NOV-JP000222

PATIENT
  Age: 46 Year
  Sex: Female
  Weight: 94.2 kg

DRUGS (1)
  1. ESTRADIOL [Suspect]
     Active Substance: ESTRADIOL
     Indication: Oestrogen replacement therapy
     Route: 062
     Dates: start: 20180626, end: 202204

REACTIONS (4)
  - Scar [Recovering/Resolving]
  - Skin infection [Recovering/Resolving]
  - Abscess [Recovering/Resolving]
  - Umbilical hernia [Recovered/Resolved]

NARRATIVE: CASE EVENT DATE: 20200414
